FAERS Safety Report 25055579 (Version 1)
Quarter: 2025Q1

REPORT INFORMATION
  Report Type: Spontaneous
  Country: US (occurrence: US)
  Receive Date: 20250308
  Receipt Date: 20250308
  Transmission Date: 20250408
  Serious: No
  Sender: COREPHARMA LLC
  Company Number: US-CorePharma LLC-2172547

PATIENT
  Sex: Male

DRUGS (1)
  1. LISINOPRIL [Suspect]
     Active Substance: LISINOPRIL
     Indication: Blood pressure measurement

REACTIONS (1)
  - Lip swelling [Unknown]
